FAERS Safety Report 18532342 (Version 1)
Quarter: 2020Q4

REPORT INFORMATION
  Report Type: Spontaneous
  Country: GB (occurrence: GB)
  Receive Date: 20201123
  Receipt Date: 20201123
  Transmission Date: 20210114
  Serious: Yes (Other)
  Sender: FDA-Public Use
  Company Number: GB-AUROBINDO-AUR-APL-2020-057027

PATIENT
  Sex: Female

DRUGS (4)
  1. BOSUTINIB [Suspect]
     Active Substance: BOSUTINIB
     Indication: CHRONIC MYELOID LEUKAEMIA
     Dosage: 100 MILLIGRAM, ONCE A DAY (100 MG, QD)
     Route: 065
     Dates: start: 20200730, end: 20200827
  2. IMATINIB. [Suspect]
     Active Substance: IMATINIB MESYLATE
     Indication: CHRONIC MYELOID LEUKAEMIA
     Dosage: 200 MILLIGRAM, ONCE A DAY (200 MG, QD)
     Route: 065
  3. IMATINIB. [Suspect]
     Active Substance: IMATINIB MESYLATE
     Dosage: 400 MILLIGRAM, ONCE A DAY (400 MG, QD)
     Route: 065
     Dates: start: 20141023, end: 20200116
  4. DASATINIB. [Suspect]
     Active Substance: DASATINIB
     Indication: CHRONIC MYELOID LEUKAEMIA
     Dosage: 20 MILLIGRAM, ONCE A DAY (20 MG, QD)
     Route: 065
     Dates: start: 20200213, end: 20200702

REACTIONS (6)
  - Cardiac failure [Unknown]
  - Dyspnoea [Unknown]
  - Anaemia [Unknown]
  - Renal failure [Unknown]
  - Pleural effusion [Unknown]
  - Drug intolerance [Unknown]
